FAERS Safety Report 4693011-2 (Version None)
Quarter: 2005Q2

REPORT INFORMATION
  Report Type: 
  Country: None (occurrence: None)
  Receive Date: 20050617
  Receipt Date: 20050419
  Transmission Date: 20051028
  Serious: Yes (Death)
  Sender: FDA-Public Use
  Company Number: US-BRISTOL-MYERS SQUIBB COMPANY-12939534

PATIENT
  Age: 77 Year
  Sex: Female

DRUGS (11)
  1. MEGACE [Suspect]
     Indication: DECREASED APPETITE
     Route: 048
     Dates: start: 20040601, end: 20050401
  2. CARBOPLATIN [Concomitant]
  3. GEMZAR [Concomitant]
  4. OXYCONTIN [Concomitant]
  5. IRESSA [Concomitant]
  6. ALPHAGAN [Concomitant]
  7. ZOMETA [Concomitant]
  8. ALDACTONE [Concomitant]
  9. SENOKOT [Concomitant]
  10. COSOPT [Concomitant]
  11. PROCRIT [Concomitant]

REACTIONS (1)
  - MALIGNANT NEOPLASM PROGRESSION [None]
